FAERS Safety Report 5900033-X (Version None)
Quarter: 2008Q3

REPORT INFORMATION
  Report Type: 
  Country: None (occurrence: None)
  Receive Date: 20080925
  Receipt Date: 20080925
  Transmission Date: 20090109
  Serious: No
  Sender: FDA-Public Use
  Company Number: None

PATIENT
  Age: 20 Year
  Sex: Male
  Weight: 52.6173 kg

DRUGS (2)
  1. BACTRIM [Suspect]
     Indication: PROPHYLAXIS
     Dosage: DAILY
     Dates: start: 20080101, end: 20080920
  2. BACTRIM [Suspect]
     Indication: SINUSITIS
     Dosage: DAILY
     Dates: start: 20080101, end: 20080920

REACTIONS (1)
  - SWELLING FACE [None]
